FAERS Safety Report 5504172-7 (Version None)
Quarter: 2007Q4

REPORT INFORMATION
  Report Type: 
  Country: None (occurrence: None)
  Receive Date: 20071101
  Receipt Date: 20071031
  Transmission Date: 20080405
  Serious: Yes (Life-Threatening)
  Sender: FDA-Public Use
  Company Number: A0691114A

PATIENT
  Age: 21 Year
  Sex: Female

DRUGS (5)
  1. BECLOMETHASONE DIPROPIONATE [Suspect]
     Indication: ASTHMA
     Dates: start: 19960719, end: 19961031
  2. CEPHALEXIN [Concomitant]
     Indication: ACNE
     Dates: start: 19961002
  3. BENZOYL PEROXIDE [Concomitant]
     Indication: ACNE
  4. AUGMENTIN '125' [Concomitant]
     Indication: UPPER RESPIRATORY TRACT INFECTION
  5. ALBUTEROL [Concomitant]
     Indication: ASTHMA

REACTIONS (1)
  - ELECTROCARDIOGRAM ABNORMAL [None]
